FAERS Safety Report 19905048 (Version 2)
Quarter: 2021Q4

REPORT INFORMATION
  Report Type: Report from Study
  Country: US (occurrence: US)
  Receive Date: 20210930
  Receipt Date: 20211028
  Transmission Date: 20220303
  Serious: Yes (Other)
  Sender: FDA-Public Use
  Company Number: US-SERVIER-S21010406

PATIENT

DRUGS (3)
  1. TIBSOVO [Suspect]
     Active Substance: IVOSIDENIB
     Indication: Brain neoplasm malignant
     Dosage: 500 MG, DAILY
     Route: 048
     Dates: start: 20210820, end: 202109
  2. TIBSOVO [Suspect]
     Active Substance: IVOSIDENIB
     Dosage: 500 MG, DAILY
     Route: 048
     Dates: start: 20210820, end: 202109
  3. TN UNSPECIFIED [Concomitant]
     Indication: Product used for unknown indication
     Dosage: UNK
     Route: 065

REACTIONS (2)
  - Seizure [Unknown]
  - Drug interaction [Recovering/Resolving]

NARRATIVE: CASE EVENT DATE: 20210101
